FAERS Safety Report 10309970 (Version 1)
Quarter: 2014Q3

REPORT INFORMATION
  Report Type: Spontaneous
  Country: US (occurrence: None)
  Receive Date: 20140715
  Receipt Date: 20140715
  Transmission Date: 20150326
  Serious: Yes (Disabling)
  Sender: FDA-Public Use
  Company Number: None

PATIENT
  Age: 52 Year
  Sex: Male
  Weight: 78.02 kg

DRUGS (1)
  1. ZOLPIDEM TARTRATE EXTENDED RELEASE [Suspect]
     Active Substance: ZOLPIDEM TARTRATE
     Indication: INSOMNIA
     Dosage: 1   ONCE DAILY TAKEN BY MOUTH
     Route: 048
     Dates: start: 20140707, end: 20140708

REACTIONS (6)
  - Headache [None]
  - Product physical issue [None]
  - Product substitution issue [None]
  - Middle insomnia [None]
  - Product formulation issue [None]
  - Circadian rhythm sleep disorder [None]

NARRATIVE: CASE EVENT DATE: 20140707
